FAERS Safety Report 25003548 (Version 1)
Quarter: 2025Q1

REPORT INFORMATION
  Report Type: Spontaneous
  Country: US (occurrence: None)
  Receive Date: 20250221
  Receipt Date: 20250221
  Transmission Date: 20250409
  Serious: Yes (Other)
  Sender: FDA-CTU
  Company Number: None

PATIENT
  Age: 9 Year
  Sex: Female
  Weight: 23.85 kg

DRUGS (1)
  1. GAMUNEX-C [Suspect]
     Active Substance: HUMAN IMMUNOGLOBULIN G
     Indication: Hypogammaglobulinaemia
     Route: 042
     Dates: start: 20241030, end: 20241126

REACTIONS (8)
  - Chills [None]
  - Ocular hyperaemia [None]
  - Body temperature increased [None]
  - Chest pain [None]
  - Dizziness [None]
  - Arrhythmia [None]
  - Confusional state [None]
  - Dyspnoea [None]

NARRATIVE: CASE EVENT DATE: 20241126
